FAERS Safety Report 4558259-6 (Version None)
Quarter: 2005Q1

REPORT INFORMATION
  Report Type: 
  Country: None (occurrence: None)
  Receive Date: 20050121
  Receipt Date: 20041112
  Transmission Date: 20050727
  Serious: Yes (Hospitalization)
  Sender: FDA-Public Use
  Company Number: AU-BRISTOL-MYERS SQUIBB COMPANY-12764825

PATIENT
  Age: 51 Year
  Sex: Female
  Weight: 58 kg

DRUGS (5)
  1. CETUXIMAB [Suspect]
     Indication: COLORECTAL CANCER METASTATIC
     Dosage: 07-OCT-04, THERAPY INIT. REC'D 5 CYCLES. WITHHELD DUE TO ADMISSION. RESTARTED ON 19-NOV-04.
     Route: 042
     Dates: start: 20041104, end: 20041104
  2. TRAMADOL HCL [Concomitant]
     Indication: ANALGESIC EFFECT
     Dates: start: 20040908
  3. OMEPRAZOLE [Concomitant]
     Indication: GASTRITIS
     Dates: start: 20040908
  4. NEUROFORTE [Concomitant]
     Dates: start: 20040401
  5. CELECOXIB [Concomitant]
     Indication: ANTIINFLAMMATORY THERAPY
     Dates: start: 20040401, end: 20041104

REACTIONS (3)
  - CYSTITIS RADIATION [None]
  - HAEMATURIA [None]
  - HAEMORRHAGE [None]
